FAERS Safety Report 20997122 (Version 6)
Quarter: 2024Q3

REPORT INFORMATION
  Report Type: Report from Study
  Country: CA (occurrence: CA)
  Receive Date: 20220623
  Receipt Date: 20240712
  Transmission Date: 20241017
  Serious: Yes (Hospitalization, Other)
  Sender: SAMSUNG BIOEPIS
  Company Number: CA-SAMSUNG BIOEPIS-SB-2022-02791

PATIENT
  Age: 56 Year
  Sex: Female

DRUGS (25)
  1. HADLIMA [Suspect]
     Active Substance: ADALIMUMAB-BWWD
     Indication: Crohn^s disease
     Dosage: 40 MG/0.8 ML;
     Route: 065
     Dates: start: 20210814
  2. HADLIMA [Suspect]
     Active Substance: ADALIMUMAB-BWWD
     Dosage: UNKNOWN
     Route: 065
  3. KEFLEX [Suspect]
     Active Substance: CEPHALEXIN
     Indication: Product used for unknown indication
     Dosage: UNKNOWN
     Route: 065
  4. GRAVOL [Concomitant]
     Active Substance: DIMENHYDRINATE
     Indication: Product used for unknown indication
     Dosage: EVERY FOUR HOURS, PEN AS REQUIRED
     Route: 065
  5. PANTOPRAZOLE SODIUM [Concomitant]
     Active Substance: PANTOPRAZOLE SODIUM
     Indication: Product used for unknown indication
     Route: 065
  6. ZOFRAN [Concomitant]
     Active Substance: ONDANSETRON HYDROCHLORIDE
     Indication: Addison^s disease
     Route: 065
  7. ZOFRAN [Concomitant]
     Active Substance: ONDANSETRON HYDROCHLORIDE
     Route: 065
  8. HYDROMORPHONE [Concomitant]
     Active Substance: HYDROMORPHONE
     Indication: Product used for unknown indication
     Dosage: 4-8MG FOR EVERY 4 HRS PRN
     Route: 048
  9. HYDROMORPHONE [Concomitant]
     Active Substance: HYDROMORPHONE
     Dosage: 4-8MG FOR EVERY 2 HRS PRN
     Route: 058
  10. HYDROMORPHONE [Concomitant]
     Active Substance: HYDROMORPHONE
     Dosage: 4 MG TO 6 MG
     Route: 048
  11. HYDROMORPHONE [Concomitant]
     Active Substance: HYDROMORPHONE
     Dosage: UNKNOWN
     Route: 048
  12. PANTOPRAZOLE [Concomitant]
     Active Substance: PANTOPRAZOLE
     Indication: Product used for unknown indication
     Dosage: UNKNOWN
     Route: 065
  13. CALCIUM CARBONATE [Concomitant]
     Active Substance: CALCIUM CARBONATE
     Indication: Product used for unknown indication
     Dosage: 309 MG QID
     Route: 065
  14. AMITRIPTYLINE [Concomitant]
     Active Substance: AMITRIPTYLINE
     Indication: Product used for unknown indication
     Dosage: 125 (UNIT UNKNOWN) PER ORAL AT BEDTIME HS
     Route: 048
  15. ONDANSETRON [Concomitant]
     Active Substance: ONDANSETRON
     Indication: Product used for unknown indication
     Dosage: 8 MG TID, ORAL DISSOLVING TABLET
     Route: 048
  16. BENADRYL [Concomitant]
     Active Substance: DIPHENHYDRAMINE HYDROCHLORIDE
     Indication: Product used for unknown indication
     Dosage: EVERY FOUR HOURS, PEN AS REQUIRED
     Route: 065
  17. VITAMINS [Concomitant]
     Active Substance: VITAMINS
     Indication: Product used for unknown indication
     Dosage: UNKNOWN, 2 GUMMIES DAILY
     Route: 065
  18. MONISTAT [Concomitant]
     Active Substance: MICONAZOLE NITRATE
     Indication: Skin disorder
     Dosage: UNKNOWN
     Route: 065
  19. MONISTAT [Concomitant]
     Active Substance: MICONAZOLE NITRATE
     Indication: Skin irritation
  20. FOSFOMYCIN [Concomitant]
     Active Substance: FOSFOMYCIN
     Indication: Product used for unknown indication
     Dosage: UNKNOWN
     Route: 065
  21. ROBAXACET [Concomitant]
     Active Substance: ACETAMINOPHEN\METHOCARBAMOL
     Indication: Product used for unknown indication
     Dosage: UNKNOWN
     Route: 065
  22. MELATONIN [Concomitant]
     Active Substance: MELATONIN
     Indication: Product used for unknown indication
     Dosage: UNKNOWN
     Route: 065
  23. HYDROCORTISONE [Concomitant]
     Active Substance: HYDROCORTISONE\HYDROCORTISONE ACETATE
     Indication: Addison^s disease
     Dosage: UNKNOWN
     Route: 065
  24. HYDROCORTISONE [Concomitant]
     Active Substance: HYDROCORTISONE\HYDROCORTISONE ACETATE
     Dosage: 20-50MG;
     Route: 048
  25. HYDROCORTISONE [Concomitant]
     Active Substance: HYDROCORTISONE\HYDROCORTISONE ACETATE
     Dosage: 20-50MG;
     Route: 058

REACTIONS (33)
  - Pyelonephritis [Unknown]
  - Nephrolithiasis [Unknown]
  - Clostridium difficile infection [Recovered/Resolved]
  - Cellulitis [Unknown]
  - Septic shock [Unknown]
  - Organ failure [Unknown]
  - Anaphylactic reaction [Recovering/Resolving]
  - Crohn^s disease [Unknown]
  - Urinary tract infection [Unknown]
  - Feeling abnormal [Unknown]
  - Fluid imbalance [Unknown]
  - Infection [Unknown]
  - Megacolon [Unknown]
  - Central nervous system lesion [Unknown]
  - Spinal deformity [Unknown]
  - Spinal fracture [Unknown]
  - Osteomyelitis [Unknown]
  - Speech disorder [Unknown]
  - Memory impairment [Unknown]
  - Impaired quality of life [Unknown]
  - Fatigue [Unknown]
  - Hypohidrosis [Unknown]
  - Alopecia universalis [Unknown]
  - Feeling abnormal [Unknown]
  - Ill-defined disorder [Unknown]
  - Weight abnormal [Not Recovered/Not Resolved]
  - Drug ineffective [Unknown]
  - Dysbiosis [Unknown]
  - Insomnia [Unknown]
  - Nasal injury [Unknown]
  - Staphylococcal infection [Unknown]
  - Dehydration [Unknown]
  - Nutritional condition abnormal [Unknown]

NARRATIVE: CASE EVENT DATE: 20210901
